FAERS Safety Report 23549072 (Version 1)
Quarter: 2024Q1

REPORT INFORMATION
  Report Type: Spontaneous
  Country: FR (occurrence: FR)
  Receive Date: 20240221
  Receipt Date: 20240221
  Transmission Date: 20240410
  Serious: Yes (Hospitalization)
  Sender: FDA-Public Use
  Company Number: None

PATIENT
  Age: 76 Year
  Sex: Female
  Weight: 64 kg

DRUGS (14)
  1. ESOMEPRAZOLE [Suspect]
     Active Substance: ESOMEPRAZOLE
     Indication: Product used for unknown indication
     Route: 048
     Dates: end: 20231205
  2. ATORVASTATIN [Concomitant]
     Active Substance: ATORVASTATIN
     Indication: Product used for unknown indication
     Dosage: ATORVASTATINE
     Route: 065
  3. VENLAFAXINE [Concomitant]
     Active Substance: VENLAFAXINE HYDROCHLORIDE
     Indication: Product used for unknown indication
     Route: 065
  4. ALPRAZOLAM [Concomitant]
     Active Substance: ALPRAZOLAM
     Indication: Product used for unknown indication
     Route: 065
  5. LOXAPINE SUCCINATE [Suspect]
     Active Substance: LOXAPINE SUCCINATE
     Indication: Mixed anxiety and depressive disorder
     Dosage: LOXAPINE (SUCCINATE DE)
     Route: 048
     Dates: end: 20231205
  6. CYAMEMAZINE [Suspect]
     Active Substance: CYAMEMAZINE
     Indication: Mixed anxiety and depressive disorder
     Route: 048
     Dates: end: 20231205
  7. TENOXICAM [Suspect]
     Active Substance: TENOXICAM
     Indication: Product used for unknown indication
     Route: 048
     Dates: end: 20231205
  8. ZOPICLONE [Suspect]
     Active Substance: ZOPICLONE
     Indication: Insomnia
     Route: 048
  9. HEPTAMINOL HYDROCHLORIDE [Suspect]
     Active Substance: HEPTAMINOL HYDROCHLORIDE
     Indication: Product used for unknown indication
     Dosage: CHLORHYDRATE D^HEPTAMINOL
     Route: 048
     Dates: end: 20231205
  10. OXYBUTYNIN CHLORIDE [Suspect]
     Active Substance: OXYBUTYNIN CHLORIDE
     Indication: Product used for unknown indication
     Dosage: CHLORHYDRATE D^OXYBUTYNINE
     Route: 048
     Dates: end: 20231205
  11. BISOPROLOL FUMARATE [Concomitant]
     Active Substance: BISOPROLOL FUMARATE
     Indication: Product used for unknown indication
     Dosage: BISOPROLOL (HEMIFUMARATE DE)
     Route: 065
  12. PERICIAZINE [Concomitant]
     Active Substance: PERICIAZINE
     Indication: Product used for unknown indication
     Route: 065
  13. AKINETON [Suspect]
     Active Substance: BIPERIDEN HYDROCHLORIDE
     Indication: Product used for unknown indication
     Dosage: AKINETON L.P. COATED TABLET WITH PROLONGED RELEASE
     Route: 048
     Dates: end: 20231205
  14. TRAMADOL HYDROCHLORIDE [Suspect]
     Active Substance: TRAMADOL HYDROCHLORIDE
     Indication: Pain
     Dosage: CHLORHYDRATE DE TRAMADOL
     Route: 048
     Dates: end: 20231205

REACTIONS (2)
  - Pneumonia [Recovered/Resolved with Sequelae]
  - Somnolence [Recovered/Resolved]

NARRATIVE: CASE EVENT DATE: 20231130
